FAERS Safety Report 13300864 (Version 1)
Quarter: 2017Q1

REPORT INFORMATION
  Report Type: Spontaneous
  Country: US (occurrence: US)
  Receive Date: 20170306
  Receipt Date: 20170306
  Transmission Date: 20170428
  Serious: Yes (Disabling)
  Sender: FDA-Public Use
  Company Number: None

PATIENT
  Age: 58 Year
  Sex: Female

DRUGS (1)
  1. CYANOCOBOLAMIN INJECTIONS [Suspect]
     Active Substance: CYANOCOBALAMIN
     Indication: PERNICIOUS ANAEMIA
     Route: 030

REACTIONS (5)
  - Dyspnoea [None]
  - Chest pain [None]
  - Memory impairment [None]
  - Asthenia [None]
  - Dizziness [None]

NARRATIVE: CASE EVENT DATE: 20170227
